FAERS Safety Report 16624919 (Version 1)
Quarter: 2019Q3

REPORT INFORMATION
  Report Type: Spontaneous
  Country: BE (occurrence: BE)
  Receive Date: 20190724
  Receipt Date: 20190724
  Transmission Date: 20191004
  Serious: Yes (Other)
  Sender: FDA-Public Use
  Company Number: BE-BAYER-2019-135103

PATIENT
  Age: 67 Year
  Sex: Female

DRUGS (4)
  1. SORAFENIB (RAF KINASE INHIBITOR) [Suspect]
     Active Substance: SORAFENIB
     Indication: ADENOID CYSTIC CARCINOMA
     Dosage: DAILY DOSE 800 MG
  2. SORAFENIB (RAF KINASE INHIBITOR) [Suspect]
     Active Substance: SORAFENIB
     Indication: ADENOID CYSTIC CARCINOMA
     Dosage: DAILY DOSE 600 MG
  3. SORAFENIB (RAF KINASE INHIBITOR) [Suspect]
     Active Substance: SORAFENIB
     Indication: ADENOID CYSTIC CARCINOMA
     Dosage: DAILY DOSE 600 MG
  4. SORAFENIB (RAF KINASE INHIBITOR) [Suspect]
     Active Substance: SORAFENIB
     Indication: ADENOID CYSTIC CARCINOMA
     Dosage: DAILY DOSE 400 MG

REACTIONS (11)
  - Pulmonary mass [None]
  - Palmar-plantar erythrodysaesthesia syndrome [None]
  - Hypertension [None]
  - Product use in unapproved indication [None]
  - Disturbance in attention [None]
  - Decreased appetite [None]
  - Mucosal inflammation [None]
  - Abdominal pain upper [None]
  - Diarrhoea [None]
  - Off label use [None]
  - Pain in extremity [None]
